FAERS Safety Report 15645216 (Version 3)
Quarter: 2018Q4

REPORT INFORMATION
  Report Type: Spontaneous
  Country: ES (occurrence: ES)
  Receive Date: 20181121
  Receipt Date: 20181207
  Transmission Date: 20190205
  Serious: Yes (Hospitalization, Other)
  Sender: FDA-Public Use
  Company Number: ES-GILEAD-2018-0325101

PATIENT
  Age: 72 Year
  Sex: Male

DRUGS (4)
  1. ZYDELIG [Suspect]
     Active Substance: IDELALISIB
     Indication: CHRONIC LYMPHOCYTIC LEUKAEMIA
     Dosage: 150 MG Q12HR
     Route: 065
     Dates: start: 20170701
  2. RITUXIMAB. [Concomitant]
     Active Substance: RITUXIMAB
     Indication: CHRONIC LYMPHOCYTIC LEUKAEMIA
     Dosage: UNK
     Route: 065
     Dates: start: 201707
  3. ZYDELIG [Suspect]
     Active Substance: IDELALISIB
     Dosage: 2 WEEKS LATER INCREASED TO 150 MG Q12 HR
     Route: 065
  4. ZYDELIG [Suspect]
     Active Substance: IDELALISIB
     Dosage: 100 MH Q12 HR
     Route: 065
     Dates: start: 20180418

REACTIONS (5)
  - Bronchopulmonary aspergillosis [Unknown]
  - Lung infection [Unknown]
  - Abdominal infection [Unknown]
  - Diarrhoea [Recovered/Resolved]
  - Diarrhoea [Recovered/Resolved]

NARRATIVE: CASE EVENT DATE: 20180225
